FAERS Safety Report 8083692-8 (Version None)
Quarter: 2012Q1

REPORT INFORMATION
  Report Type: 
  Country: None (occurrence: None)
  Receive Date: 20120127
  Receipt Date: 20110304
  Transmission Date: 20120608
  Serious: No
  Sender: FDA-Public Use
  Company Number: US-ABBOTT-11P-163-0709507-00

PATIENT
  Age: 56 Year
  Sex: Male

DRUGS (6)
  1. BENACAR [Concomitant]
     Indication: PRODUCT USED FOR UNKNOWN INDICATION
  2. IBUPROFEN [Concomitant]
     Indication: PAIN
  3. COUGH SYRUP [Concomitant]
     Indication: PRODUCT USED FOR UNKNOWN INDICATION
  4. DILTIAZEM HCL [Concomitant]
     Indication: PRODUCT USED FOR UNKNOWN INDICATION
  5. COLCHICINE [Concomitant]
     Indication: PRODUCT USED FOR UNKNOWN INDICATION
  6. HUMIRA [Suspect]
     Indication: RHEUMATOID ARTHRITIS
     Dates: start: 20110217

REACTIONS (1)
  - PAIN [None]
